FAERS Safety Report 5680767-5 (Version None)
Quarter: 2008Q1

REPORT INFORMATION
  Report Type: 
  Country: None (occurrence: None)
  Receive Date: 20080326
  Receipt Date: 20080303
  Transmission Date: 20080703
  Serious: No
  Sender: FDA-Public Use
  Company Number: US-BOEHRINGER INGELHEIM GMBH, GERMANY-2008-BP-03212BP

PATIENT
  Sex: Male

DRUGS (9)
  1. SPIRIVA [Suspect]
     Indication: CHRONIC OBSTRUCTIVE PULMONARY DISEASE
     Route: 055
     Dates: start: 20070201
  2. TRAMADOL HCL [Concomitant]
     Indication: BACK PAIN
  3. ADVAIR DISKUS 100/50 [Concomitant]
     Indication: CHRONIC OBSTRUCTIVE PULMONARY DISEASE
  4. HYDROCHLOROTHIAZIDE [Concomitant]
  5. FLOMAX [Concomitant]
  6. ULTRACET [Concomitant]
     Indication: ARTHRALGIA
  7. ACETAMINOPHEN [Concomitant]
     Indication: ARTHRALGIA
  8. VITAMINS [Concomitant]
  9. IBUPROFEN [Concomitant]

REACTIONS (1)
  - URTICARIA [None]
